FAERS Safety Report 6049272-0 (Version None)
Quarter: 2009Q1

REPORT INFORMATION
  Report Type: 
  Country: None (occurrence: None)
  Receive Date: 20090123
  Receipt Date: 20090114
  Transmission Date: 20090719
  Serious: Yes (Hospitalization, Other)
  Sender: FDA-Public Use
  Company Number: PHHO2007MX03022

PATIENT
  Age: 64 Year
  Sex: Female

DRUGS (3)
  1. DIOVAN [Suspect]
     Indication: HYPERTENSION
     Dosage: 1 TABLET PER DAY
     Route: 048
     Dates: start: 20060901, end: 20070201
  2. DIOVAN HCT [Suspect]
     Indication: HYPERTENSION
     Dosage: 160/12.5MG ONE TABLET DAILY
     Route: 048
     Dates: start: 20060901
  3. DIOVAN HCT [Suspect]
     Dosage: 80/12.5 MG PER DAY

REACTIONS (3)
  - CEREBROVASCULAR ACCIDENT [None]
  - DYSKINESIA [None]
  - FLUID RETENTION [None]
